FAERS Safety Report 24022697 (Version 1)
Quarter: 2024Q2

REPORT INFORMATION
  Report Type: Spontaneous
  Country: IN (occurrence: IN)
  Receive Date: 20240627
  Receipt Date: 20240627
  Transmission Date: 20240716
  Serious: No
  Sender: FDA-Public Use
  Company Number: IN-ROCHE-3534815

PATIENT
  Age: 72 Year
  Sex: Male

DRUGS (4)
  1. VABYSMO [Suspect]
     Active Substance: FARICIMAB\FARICIMAB-SVOA
     Indication: Detachment of retinal pigment epithelium
     Dosage: SECOND INFUSION START DATE: 02/APR/2024
     Route: 050
     Dates: start: 20240109
  2. VABYSMO [Suspect]
     Active Substance: FARICIMAB\FARICIMAB-SVOA
     Indication: Choroidal neovascularisation
  3. NEVANAC [Concomitant]
     Active Substance: NEPAFENAC
     Dosage: 1 DROP 3 TIMES A DAY IN LEFT EYE
     Route: 047
     Dates: start: 20240318
  4. EYEMIST [Concomitant]
     Dosage: 1 DROP 3 TIMES A DAY IN BOTH EYES
     Route: 047
     Dates: start: 20240318

REACTIONS (2)
  - Off label use [Unknown]
  - No adverse event [Unknown]

NARRATIVE: CASE EVENT DATE: 20240109
